FAERS Safety Report 4296931-6 (Version None)
Quarter: 2004Q1

REPORT INFORMATION
  Report Type: 
  Country: None (occurrence: None)
  Receive Date: 20040126
  Receipt Date: 20030821
  Transmission Date: 20041129
  Serious: No
  Sender: FDA-Public Use
  Company Number: USA030845102

PATIENT
  Age: 17 Year
  Sex: Female
  Weight: 63 kg

DRUGS (3)
  1. STRATTERA [Suspect]
     Indication: ATTENTION DEFICIT/HYPERACTIVITY DISORDER
     Dosage: 40 MG/2 DAY
     Dates: start: 20030801
  2. ZOLOFT [Concomitant]
  3. .. [Suspect]

REACTIONS (2)
  - SOMNOLENCE [None]
  - URINARY HESITATION [None]
